FAERS Safety Report 7388445-1 (Version None)
Quarter: 2011Q2

REPORT INFORMATION
  Report Type: 
  Country: None (occurrence: None)
  Receive Date: 20110401
  Receipt Date: 20110330
  Transmission Date: 20111010
  Serious: Yes (Hospitalization)
  Sender: FDA-Public Use
  Company Number: JP-PFIZER INC-2011071160

PATIENT
  Sex: Female

DRUGS (3)
  1. METHYCOBAL [Suspect]
     Dosage: 500 UG, 3X/DAY
     Route: 048
  2. OMEPRAZON [Suspect]
     Route: 048
  3. LYRICA [Suspect]
     Dosage: 150 MG/DAY
     Route: 048
     Dates: end: 20110214

REACTIONS (3)
  - CHROMATURIA [None]
  - ABDOMINAL PAIN UPPER [None]
  - GAMMA-GLUTAMYLTRANSFERASE INCREASED [None]
